FAERS Safety Report 4376949-5 (Version None)
Quarter: 2004Q2

REPORT INFORMATION
  Report Type: 
  Country: None (occurrence: None)
  Receive Date: 20040608
  Receipt Date: 20040527
  Transmission Date: 20050107
  Serious: Yes (Death, Life-Threatening)
  Sender: FDA-Public Use
  Company Number: 2004035675

PATIENT
  Age: 60 Year
  Sex: Female
  Weight: 65 kg

DRUGS (13)
  1. VORICONAZOLE (VORICONAZOLE) [Suspect]
     Indication: SYSTEMIC MYCOSIS
     Dosage: 400 MG (200 MG, 2 IN 1 D) INTRAVENOUS
     Route: 042
     Dates: start: 20040511, end: 20040524
  2. AMINO ACIDS [Concomitant]
  3. CALCIUM [Concomitant]
  4. NOREPINEPHRINE [Concomitant]
  5. DOBUTAMINE [Concomitant]
  6. HYDROCORTISONE [Concomitant]
  7. METOCLOPRAMIDE HYDROCHLORIDE [Concomitant]
  8. INSULIN [Concomitant]
  9. IMIPENEM [Concomitant]
  10. UNACID (AMPICILLIN SODIUM, SULBACTAM SODIUM) [Concomitant]
  11. AMIKACIN [Concomitant]
  12. PIRACETAM [Concomitant]
  13. FUROSEMIDE [Concomitant]

REACTIONS (2)
  - CONVULSION [None]
  - MULTI-ORGAN FAILURE [None]
